FAERS Safety Report 4363164-4 (Version None)
Quarter: 2004Q2

REPORT INFORMATION
  Report Type: 
  Country: None (occurrence: None)
  Receive Date: 20040524
  Receipt Date: 20030403
  Transmission Date: 20050107
  Serious: No
  Sender: FDA-Public Use
  Company Number: US-GLAXOSMITHKLINE-A0403308A

PATIENT

DRUGS (1)
  1. BACTROBAN [Suspect]
     Indication: INFECTION PROPHYLAXIS
     Route: 061

REACTIONS (2)
  - CONJUNCTIVITIS [None]
  - HYPERSENSITIVITY [None]
